FAERS Safety Report 15589013 (Version 1)
Quarter: 2018Q4

REPORT INFORMATION
  Report Type: Spontaneous
  Country: PL (occurrence: PL)
  Receive Date: 20181106
  Receipt Date: 20181106
  Transmission Date: 20190205
  Serious: Yes (Other)
  Sender: FDA-Public Use
  Company Number: PL-AUROBINDO-AUR-APL-2018-053696

PATIENT
  Age: 44 Year
  Sex: Male
  Weight: 67 kg

DRUGS (2)
  1. RIBAVIRIN. [Suspect]
     Active Substance: RIBAVIRIN
     Indication: CHRONIC HEPATITIS C
     Dosage: 1000 MILLIGRAM, DAILY
     Route: 065
     Dates: start: 201711, end: 201804
  2. SOVALDI [Suspect]
     Active Substance: SOFOSBUVIR
     Indication: CHRONIC HEPATITIS C
     Dosage: 400 MILLIGRAM, DAILY
     Route: 065
     Dates: start: 201711, end: 201804

REACTIONS (1)
  - Drug ineffective [Recovered/Resolved]
